FAERS Safety Report 18258637 (Version 5)
Quarter: 2023Q1

REPORT INFORMATION
  Report Type: Spontaneous
  Country: US (occurrence: US)
  Receive Date: 20200911
  Receipt Date: 20230103
  Transmission Date: 20230417
  Serious: Yes (Disabling)
  Sender: FDA-Public Use
  Company Number: US-PFIZER INC-2020281139

PATIENT
  Age: 67 Year
  Sex: Female
  Weight: 57.61 kg

DRUGS (1)
  1. PREMARIN [Suspect]
     Active Substance: ESTROGENS, CONJUGATED
     Indication: Hysterectomy
     Dosage: 0.625 MG, DAILY
     Route: 048

REACTIONS (11)
  - Intentional product misuse [Unknown]
  - Drug dependence [Not Recovered/Not Resolved]
  - Vaginal haemorrhage [Not Recovered/Not Resolved]
  - Coital bleeding [Recovered/Resolved]
  - Nervousness [Unknown]
  - Insomnia [Unknown]
  - Ill-defined disorder [Unknown]
  - Hyperhidrosis [Unknown]
  - Menopausal symptoms [Unknown]
  - Stress [Unknown]
  - Memory impairment [Unknown]
